FAERS Safety Report 6886841-X (Version None)
Quarter: 2010Q3

REPORT INFORMATION
  Report Type: 
  Country: None (occurrence: None)
  Receive Date: 20100730
  Receipt Date: 20100723
  Transmission Date: 20110219
  Serious: Yes (Other)
  Sender: FDA-Public Use
  Company Number: US-ASTRAZENECA-2009UW17906

PATIENT
  Age: 34 Year
  Sex: Female
  Weight: 79.4 kg

DRUGS (13)
  1. SEROQUEL [Suspect]
     Indication: DEPRESSION
     Route: 048
     Dates: start: 19980101
  2. SEROQUEL [Suspect]
     Route: 048
     Dates: start: 20070101
  3. CYMBALTA [Concomitant]
     Dates: start: 20040101
  4. XANAX [Concomitant]
     Indication: ANXIETY
     Dates: start: 20050101
  5. SYMBYAX [Concomitant]
     Dosage: 6/25 MG DAILY
     Dates: start: 20051128
  6. HYDROCODONE BITARTRATE [Concomitant]
     Indication: MYALGIA
     Dates: start: 20051128
  7. NEURONTIN [Concomitant]
     Dates: start: 20051128
  8. ZOLOFT [Concomitant]
  9. PROZAC [Concomitant]
  10. CELEXA [Concomitant]
  11. EFFEXOR [Concomitant]
  12. WELLBUTRIN [Concomitant]
  13. DEPAKOTE [Concomitant]

REACTIONS (7)
  - BLOOD CHOLESTEROL INCREASED [None]
  - BLOOD TRIGLYCERIDES INCREASED [None]
  - HYPERLIPIDAEMIA [None]
  - MULTIPLE SCLEROSIS [None]
  - OBESITY [None]
  - TYPE 2 DIABETES MELLITUS [None]
  - WEIGHT INCREASED [None]
